FAERS Safety Report 8212082-X (Version None)
Quarter: 2012Q1

REPORT INFORMATION
  Report Type: 
  Country: None (occurrence: None)
  Receive Date: 20120315
  Receipt Date: 20120229
  Transmission Date: 20120608
  Serious: Yes (Death, Hospitalization, Other)
  Sender: FDA-Public Use
  Company Number: JP-ROCHE-1007025

PATIENT
  Sex: Male
  Weight: 68 kg

DRUGS (12)
  1. ALOXI [Concomitant]
     Indication: NAUSEA
     Route: 042
     Dates: start: 20110928, end: 20110928
  2. LOXONIN [Concomitant]
     Indication: ANALGESIC THERAPY
     Route: 048
     Dates: start: 20110501, end: 20111013
  3. GABAPENTIN [Concomitant]
     Indication: ANALGESIC THERAPY
     Route: 048
     Dates: start: 20110912, end: 20111013
  4. DECADRON [Concomitant]
     Indication: NAUSEA
     Route: 042
     Dates: start: 20110928, end: 20110928
  5. EMEND [Concomitant]
     Route: 048
     Dates: start: 20110929, end: 20110930
  6. RABEPRAZOLE SODIUM [Concomitant]
     Indication: GASTRITIS
     Route: 048
     Dates: start: 20110501, end: 20111013
  7. AVASTIN [Suspect]
     Indication: LUNG ADENOCARCINOMA RECURRENT
     Route: 041
     Dates: start: 20110928, end: 20110928
  8. EMEND [Concomitant]
     Indication: NAUSEA
     Route: 048
     Dates: start: 20110928, end: 20110928
  9. FENTANYL-100 [Concomitant]
     Indication: ANALGESIC THERAPY
     Route: 062
     Dates: start: 20110501, end: 20111013
  10. CARBOPLATIN [Suspect]
     Indication: LUNG ADENOCARCINOMA RECURRENT
     Dosage: DOSAGE IS UNCERTAIN.
     Route: 041
     Dates: start: 20110928, end: 20110928
  11. AVASTIN [Suspect]
  12. TAXOTERE [Suspect]
     Indication: LUNG ADENOCARCINOMA RECURRENT
     Dosage: DOSAGE IS UNCERTAIN.
     Route: 041
     Dates: start: 20110928, end: 20110928

REACTIONS (5)
  - NAUSEA [None]
  - OESOPHAGEAL CANDIDIASIS [None]
  - LUNG ADENOCARCINOMA RECURRENT [None]
  - FEBRILE NEUTROPENIA [None]
  - PLATELET COUNT DECREASED [None]
